FAERS Safety Report 16886273 (Version 4)
Quarter: 2019Q4

REPORT INFORMATION
  Report Type: Report from Study
  Country: US (occurrence: US)
  Receive Date: 20191004
  Receipt Date: 20191202
  Transmission Date: 20200122
  Serious: Yes (Death, Hospitalization, Other)
  Sender: FDA-Public Use
  Company Number: US-ASTELLAS-2019US039099

PATIENT
  Sex: Male

DRUGS (1)
  1. ASP2215 [Suspect]
     Active Substance: GILTERITINIB
     Indication: ACUTE MYELOID LEUKAEMIA
     Route: 048
     Dates: start: 20190909

REACTIONS (13)
  - Frustration tolerance decreased [Unknown]
  - Chills [Unknown]
  - Muscle spasms [Unknown]
  - Fatigue [Unknown]
  - Sensitive skin [Unknown]
  - Peripheral swelling [Unknown]
  - Pyrexia [Unknown]
  - Diarrhoea [Unknown]
  - Death [Fatal]
  - Arthralgia [Unknown]
  - Neutropenia [Unknown]
  - Infection [Unknown]
  - Pneumonia [Unknown]
